APPROVED DRUG PRODUCT: WELLBUTRIN SR
Active Ingredient: BUPROPION HYDROCHLORIDE
Strength: 150MG
Dosage Form/Route: TABLET, EXTENDED RELEASE;ORAL
Application: N020358 | Product #003 | TE Code: AB1
Applicant: GLAXOSMITHKLINE
Approved: Oct 4, 1996 | RLD: Yes | RS: No | Type: RX